FAERS Safety Report 15102069 (Version 11)
Quarter: 2019Q2

REPORT INFORMATION
  Report Type: Report from Study
  Country: US (occurrence: US)
  Receive Date: 20180703
  Receipt Date: 20190626
  Transmission Date: 20190711
  Serious: Yes (Disabling, Other)
  Sender: FDA-Public Use
  Company Number: US-SA-2018SA158213

PATIENT
  Age: 68 Year
  Sex: Female

DRUGS (2)
  1. INSULIN GLARGINE [Suspect]
     Active Substance: INSULIN GLARGINE
     Indication: HYPOGLYCAEMIA
     Dosage: 10 U, QD
  2. INSULIN GLARGINE [Suspect]
     Active Substance: INSULIN GLARGINE
     Indication: TYPE 2 DIABETES MELLITUS
     Dosage: 15 U, QD

REACTIONS (18)
  - Pulmonary congestion [Not Recovered/Not Resolved]
  - Weight increased [Unknown]
  - Sleep disorder [Not Recovered/Not Resolved]
  - Crying [Unknown]
  - Injection site pain [Unknown]
  - Fatigue [Unknown]
  - Malaise [Not Recovered/Not Resolved]
  - Malaise [Unknown]
  - Head lag [Unknown]
  - Stress [Not Recovered/Not Resolved]
  - Aggression [Unknown]
  - Device issue [Unknown]
  - Hypersensitivity [Not Recovered/Not Resolved]
  - Product dose omission [Unknown]
  - Disability [Not Recovered/Not Resolved]
  - Pain [Unknown]
  - Head injury [Not Recovered/Not Resolved]
  - Restlessness [Not Recovered/Not Resolved]
